FAERS Safety Report 10072459 (Version 1)
Quarter: 2014Q2

REPORT INFORMATION
  Report Type: Spontaneous
  Country: FR (occurrence: FR)
  Receive Date: 20140411
  Receipt Date: 20140411
  Transmission Date: 20141212
  Serious: Yes (Other)
  Sender: FDA-Public Use
  Company Number: FR-ASTRAZENECA-2014SE24625

PATIENT
  Sex: Male

DRUGS (2)
  1. XEROQUEL [Suspect]
     Indication: BIPOLAR I DISORDER
     Dosage: DOSE PROGRESSIVELY INCREASED (100, 200 AND THEN 300 MG PER DAY)
     Route: 048
  2. SEROPLEX [Concomitant]

REACTIONS (3)
  - Malaise [Recovered/Resolved]
  - Loss of consciousness [Recovered/Resolved]
  - Syncope [Recovered/Resolved]
